FAERS Safety Report 17511648 (Version 1)
Quarter: 2020Q1

REPORT INFORMATION
  Report Type: Spontaneous
  Country: FR (occurrence: FR)
  Receive Date: 20200308
  Receipt Date: 20200308
  Transmission Date: 20200409
  Serious: Yes (Disabling, Other)
  Sender: FDA-Public Use
  Company Number: NVSC2020FR061391

PATIENT
  Age: 66 Year
  Sex: Male
  Weight: 90 kg

DRUGS (4)
  1. AFINITOR [Suspect]
     Active Substance: EVEROLIMUS
     Indication: PANCREATIC NEUROENDOCRINE TUMOUR
     Dosage: 10 MG, QD (10 MG, DAILY)
     Route: 065
     Dates: start: 20170904, end: 20170910
  2. SANDOSTATINE [Concomitant]
     Active Substance: OCTREOTIDE ACETATE
     Indication: NEUROENDOCRINE TUMOUR
     Dosage: UNK
     Route: 030
     Dates: start: 20150813
  3. SUTENT [Suspect]
     Active Substance: SUNITINIB MALATE
     Indication: PRODUCT USED FOR UNKNOWN INDICATION
     Dosage: 37.5 MG, QD (37.5 MG, DAILY)
     Route: 065
     Dates: start: 20170813, end: 20170903
  4. CREON [Concomitant]
     Active Substance: PANCRELIPASE AMYLASE\PANCRELIPASE LIPASE\PANCRELIPASE PROTEASE
     Indication: STEATORRHOEA
     Dosage: UNK
     Route: 048
     Dates: start: 20150813

REACTIONS (6)
  - Hepatocellular injury [Recovering/Resolving]
  - Thrombocytopenia [Recovered/Resolved]
  - Mucosal inflammation [Recovered/Resolved]
  - Urticaria [Recovered/Resolved]
  - Erythema [Recovered/Resolved]
  - Oedema [Recovered/Resolved]

NARRATIVE: CASE EVENT DATE: 201709
